FAERS Safety Report 25426231 (Version 1)
Quarter: 2025Q2

REPORT INFORMATION
  Report Type: Spontaneous
  Country: KR (occurrence: KR)
  Receive Date: 20250612
  Receipt Date: 20250612
  Transmission Date: 20250717
  Serious: Yes (Hospitalization, Other)
  Sender: BAXTER
  Company Number: KR-BAXTER-2025BAX016390

PATIENT
  Age: 80 Year
  Sex: Male
  Weight: 59.2 kg

DRUGS (13)
  1. CYCLOPHOSPHAMIDE [Suspect]
     Active Substance: CYCLOPHOSPHAMIDE
     Indication: Diffuse large B-cell lymphoma
     Dosage: R-CHOP; INJECTION; EVERY 3 WEEK; DURATION: UNKNOWN
     Route: 042
     Dates: start: 20220120
  2. CYCLOPHOSPHAMIDE [Suspect]
     Active Substance: CYCLOPHOSPHAMIDE
     Dosage: R-CHOP; INJECTION; EVERY 3 WEEK; DURATION: UNKNOWN
     Route: 042
     Dates: start: 20220324, end: 20220414
  3. DOXORUBICIN [Suspect]
     Active Substance: DOXORUBICIN
     Indication: Diffuse large B-cell lymphoma
     Dosage: R-CHOP; 70.8 MG, EVERY 3 WK; DURATION: UNKNOWN
     Route: 042
     Dates: start: 20220120
  4. DOXORUBICIN [Suspect]
     Active Substance: DOXORUBICIN
     Dosage: R-CHOP; 66.4 MG; DURATION: UNKNOWN
     Route: 042
     Dates: start: 20220324, end: 20220414
  5. MABTHERA [Suspect]
     Active Substance: RITUXIMAB
     Indication: Diffuse large B-cell lymphoma
     Dosage: 663.8 MG, EVERY 3 WK
     Route: 042
     Dates: start: 20220120
  6. MABTHERA [Suspect]
     Active Substance: RITUXIMAB
     Dosage: 622.5 MG, EVERY 3 WK; DURATION: UNKNOWN
     Route: 042
     Dates: start: 20220324, end: 20220414
  7. VINCRISTINE [Suspect]
     Active Substance: VINCRISTINE
     Indication: Diffuse large B-cell lymphoma
     Dosage: 1.5 MG, EVERY 3 WK; DURATION: UNKNOWN
     Route: 042
     Dates: start: 20220120
  8. VINCRISTINE [Suspect]
     Active Substance: VINCRISTINE
     Dosage: 1.5 MG, EVERY 3 WK; DURATION: UNKNOWN
     Route: 042
     Dates: start: 20220324, end: 20220414
  9. PREDNISOLONE [Suspect]
     Active Substance: PREDNISOLONE
     Indication: Diffuse large B-cell lymphoma
     Dosage: 100 MG, PO (CYCLE D1-D5)
     Route: 048
     Dates: start: 20220120, end: 20220414
  10. Acertil arginine [Concomitant]
     Route: 048
     Dates: start: 2010, end: 20220415
  11. NEBIVOLOL HYDROCHLORIDE [Concomitant]
     Active Substance: NEBIVOLOL HYDROCHLORIDE
     Route: 048
     Dates: start: 2010, end: 20220415
  12. NORVASC [Concomitant]
     Active Substance: AMLODIPINE BESYLATE
     Route: 048
     Dates: start: 2010, end: 20220415
  13. XARELTO [Concomitant]
     Active Substance: RIVAROXABAN
     Route: 048
     Dates: start: 2010, end: 20220415

REACTIONS (6)
  - COVID-19 [Recovered/Resolved]
  - Pneumocystis jirovecii pneumonia [Recovered/Resolved]
  - Cough [Unknown]
  - Pyrexia [Unknown]
  - Dyspnoea [Unknown]
  - Pleural effusion [Unknown]

NARRATIVE: CASE EVENT DATE: 20220414
